FAERS Safety Report 5669594-2 (Version None)
Quarter: 2008Q1

REPORT INFORMATION
  Report Type: 
  Country: None (occurrence: None)
  Receive Date: 20080317
  Receipt Date: 20080306
  Transmission Date: 20080703
  Serious: Yes (Other)
  Sender: FDA-Public Use
  Company Number: PHNU2008DE01210

PATIENT
  Age: 9 Year
  Sex: Male

DRUGS (1)
  1. RITALIN LA [Suspect]
     Dosage: 20 MG, QD
     Route: 048
     Dates: start: 20071201, end: 20071201

REACTIONS (2)
  - MALAISE [None]
  - PERSONALITY CHANGE [None]
